FAERS Safety Report 15246228 (Version 1)
Quarter: 2018Q3

REPORT INFORMATION
  Report Type: Spontaneous
  Country: JP (occurrence: JP)
  Receive Date: 20180806
  Receipt Date: 20180806
  Transmission Date: 20181010
  Serious: Yes (Death, Other)
  Sender: FDA-Public Use
  Company Number: JP-MYLANLABS-2018M1058455

PATIENT

DRUGS (3)
  1. HEPARIN [Suspect]
     Active Substance: HEPARIN SODIUM
     Indication: PULMONARY EMBOLISM
     Route: 064
  2. MONTEPLASE [Suspect]
     Active Substance: MONTEPLASE
     Indication: PULMONARY EMBOLISM
     Dosage: TWO DOSES
     Route: 064
  3. ADRENALINE                         /00003901/ [Concomitant]
     Active Substance: EPINEPHRINE
     Indication: PRODUCT USED FOR UNKNOWN INDICATION
     Route: 064

REACTIONS (2)
  - Hydrops foetalis [Fatal]
  - Foetal exposure during pregnancy [Recovered/Resolved]
